FAERS Safety Report 22132712 (Version 1)
Quarter: 2023Q1

REPORT INFORMATION
  Report Type: Spontaneous
  Country: US (occurrence: US)
  Receive Date: 20230323
  Receipt Date: 20230323
  Transmission Date: 20230418
  Serious: No
  Sender: FDA-Public Use
  Company Number: US-009507513-2303USA006937

PATIENT
  Age: 85 Year
  Sex: Female

DRUGS (1)
  1. SIVEXTRO [Suspect]
     Active Substance: TEDIZOLID PHOSPHATE
     Indication: Cellulitis
     Dosage: 200MG BY MOUTH ONCE DAILY FOR 6 DAYS
     Route: 048
     Dates: start: 20230301, end: 20230306

REACTIONS (2)
  - Therapeutic product effect delayed [Unknown]
  - Impaired healing [Recovering/Resolving]

NARRATIVE: CASE EVENT DATE: 20230315
